FAERS Safety Report 25723683 (Version 1)
Quarter: 2025Q3

REPORT INFORMATION
  Report Type: Other
  Country: US (occurrence: US)
  Receive Date: 20250825
  Receipt Date: 20250825
  Transmission Date: 20251021
  Serious: Yes (Other)
  Sender: FAGRON COMPOUNDING SERVICES D/B/A FAGRON STERILE SERVICES, WICHITA, KS
  Company Number: US-Fagron Sterile Services-2183188

PATIENT
  Age: 39 Year
  Sex: Male
  Weight: 79.54 kg

DRUGS (1)
  1. PHENYLEPHRINE [Suspect]
     Active Substance: PHENYLEPHRINE
     Indication: Hip arthroplasty

REACTIONS (1)
  - Bradycardia [Recovered/Resolved]

NARRATIVE: CASE EVENT DATE: 20250728
